FAERS Safety Report 24184226 (Version 1)
Quarter: 2024Q3

REPORT INFORMATION
  Report Type: Spontaneous
  Country: IL (occurrence: IL)
  Receive Date: 20240807
  Receipt Date: 20240807
  Transmission Date: 20241017
  Serious: Yes (Life-Threatening, Hospitalization)
  Sender: PFIZER
  Company Number: IL-PFIZER INC-PV202400102210

PATIENT
  Age: 29 Year
  Sex: Female

DRUGS (4)
  1. CYTOTEC [Suspect]
     Active Substance: MISOPROSTOL
     Indication: Abortion
     Dosage: 800 MCG
     Dates: start: 20240528
  2. CYTOTEC [Suspect]
     Active Substance: MISOPROSTOL
     Dosage: 400 MCG
     Dates: start: 20240528
  3. CYTOTEC [Suspect]
     Active Substance: MISOPROSTOL
     Dosage: 400 MCG
     Dates: start: 20240528
  4. MIFEPRISTONE [Concomitant]
     Active Substance: MIFEPRISTONE

REACTIONS (4)
  - Loss of consciousness [Recovered/Resolved]
  - Anaphylactoid syndrome of pregnancy [Recovered/Resolved]
  - Disseminated intravascular coagulation [Recovered/Resolved]
  - Cardiac arrest [Recovered/Resolved]

NARRATIVE: CASE EVENT DATE: 20240529
